FAERS Safety Report 7144852 (Version 2)
Quarter: 2013Q4

REPORT INFORMATION
  Report Type: Spontaneous
  Country: US (occurrence: US)
  Receive Date: 20091009
  Receipt Date: 20131106
  Transmission Date: 20140711
  Serious: Yes (Other)
  Sender: FDA-Public Use
  Company Number: US-BRISTOL-MYERS SQUIBB COMPANY-14807937

PATIENT
  Age: 63 Year
  Sex: Female
  Weight: 91.15 kg

DRUGS (9)
  1. GLUCOPHAGE TABS 1000 MG [Suspect]
     Indication: TYPE 2 DIABETES MELLITUS
  2. METFORMIN HCL [Suspect]
     Indication: TYPE 2 DIABETES MELLITUS
     Dosage: 1000MG BID UNTIL 03/2009 OR 04/2009 WHEN IT WAS DISCONTINUED.
     Dates: end: 200904
  3. LISINOPRIL [Suspect]
  4. HYDROCODONE [Suspect]
     Indication: BACK PAIN
  5. OXYBUTYNIN [Suspect]
     Indication: URINARY INCONTINENCE
  6. XANAX [Suspect]
     Indication: BACK PAIN
  7. ALEVE [Suspect]
     Indication: PAIN
  8. AVANDIA [Suspect]
  9. GLIMEPIRIDE [Suspect]

REACTIONS (1)
  - Renal impairment [Unknown]
